FAERS Safety Report 10616444 (Version 1)
Quarter: 2014Q4

REPORT INFORMATION
  Report Type: Spontaneous
  Country: US (occurrence: None)
  Receive Date: 20141126
  Receipt Date: 20141126
  Transmission Date: 20150529
  Serious: Yes (Other)
  Sender: FDA-Public Use
  Company Number: None

PATIENT
  Age: 94 Year
  Sex: Male
  Weight: 58.06 kg

DRUGS (1)
  1. AZITHROMYCIN [Suspect]
     Active Substance: AZITHROMYCIN ANHYDROUS
     Indication: CHRONIC OBSTRUCTIVE PULMONARY DISEASE
     Dosage: 5 DAY ZPACK, QD, ORAL
     Route: 048
     Dates: start: 20141117, end: 20141121

REACTIONS (3)
  - Hallucination [None]
  - Aggression [None]
  - Agitation [None]

NARRATIVE: CASE EVENT DATE: 20141123
